FAERS Safety Report 7432519-3 (Version None)
Quarter: 2011Q2

REPORT INFORMATION
  Report Type: 
  Country: None (occurrence: None)
  Receive Date: 20110422
  Receipt Date: 20110411
  Transmission Date: 20111010
  Serious: No
  Sender: FDA-Public Use
  Company Number: US-B.I. PHARMACEUTICALS,INC./RIDGEFIELD-2011-BP-10565BP

PATIENT
  Age: 77 Year
  Sex: Female

DRUGS (18)
  1. PRADAXA [Suspect]
     Indication: ATRIAL FLUTTER
  2. SPIRIVA [Concomitant]
     Indication: CHRONIC OBSTRUCTIVE PULMONARY DISEASE
  3. HYDROCODONE BITARTRATE [Concomitant]
     Indication: CERVICAL SPINAL STENOSIS
  4. CELEBREX [Concomitant]
     Indication: ARTHRITIS
  5. SYMBICORT [Concomitant]
     Indication: ASTHMA
  6. PROTONIX [Concomitant]
     Indication: GASTROOESOPHAGEAL REFLUX DISEASE
  7. NIFEDIAC [Concomitant]
     Indication: HYPERTENSION
  8. HYDROCODONE BITARTRATE [Concomitant]
     Indication: LUMBAR SPINAL STENOSIS
  9. FLOMAX [Concomitant]
     Indication: URINARY HESITATION
  10. AMBIEN [Concomitant]
     Indication: INSOMNIA
  11. ADVICOR [Concomitant]
     Indication: BLOOD CHOLESTEROL INCREASED
  12. METOPROLOL SUCCINATE [Suspect]
     Indication: HEART RATE ABNORMAL
  13. LEVOTHYROXINE SODIUM [Concomitant]
     Indication: HYPOTHYROIDISM
  14. SINGULAIR [Concomitant]
     Indication: ASTHMA
  15. ESTRADIOL PATCH [Concomitant]
     Indication: MENOPAUSE
  16. PRADAXA [Suspect]
     Indication: ATRIAL FIBRILLATION
     Dosage: 300 MG
     Route: 048
     Dates: start: 20110101
  17. SPIRONOLACTONE [Concomitant]
     Indication: OEDEMA
  18. LASIX [Concomitant]
     Indication: OEDEMA

REACTIONS (5)
  - VULVOVAGINAL BURNING SENSATION [None]
  - DYSPEPSIA [None]
  - LETHARGY [None]
  - BURNING SENSATION [None]
  - THROAT IRRITATION [None]
